FAERS Safety Report 19652589 (Version 2)
Quarter: 2022Q1

REPORT INFORMATION
  Report Type: Report from Study
  Country: CA (occurrence: CA)
  Receive Date: 20210803
  Receipt Date: 20220311
  Transmission Date: 20220423
  Serious: Yes (Other)
  Sender: FDA-Public Use
  Company Number: CA-SA-SAC20210802000874

PATIENT
  Age: 15 Year
  Sex: Male

DRUGS (5)
  1. DUPILUMAB [Suspect]
     Active Substance: DUPILUMAB
     Indication: Dermatitis atopic
     Dosage: 600 MG, 1X
     Route: 058
     Dates: start: 20210728, end: 20210728
  2. DIPROSONE [Concomitant]
     Active Substance: BETAMETHASONE DIPROPIONATE
  3. TOPICORT [Concomitant]
     Active Substance: DESOXIMETASONE
  4. BETADERM [Concomitant]
     Active Substance: BETAMETHASONE VALERATE
  5. EUCRISA [Concomitant]
     Active Substance: CRISABOROLE

REACTIONS (3)
  - Neurogenic shock [Recovered/Resolved]
  - Asthenia [Recovered/Resolved]
  - Dizziness [Recovered/Resolved]

NARRATIVE: CASE EVENT DATE: 20210728
